FAERS Safety Report 10074079 (Version 1)
Quarter: 2014Q2

REPORT INFORMATION
  Report Type: Spontaneous
  Country: DO (occurrence: DO)
  Receive Date: 20140411
  Receipt Date: 20140411
  Transmission Date: 20141212
  Serious: Yes (Hospitalization, Other)
  Sender: FDA-Public Use
  Company Number: PHHY2014DO044615

PATIENT
  Age: 58 Year
  Sex: Female
  Weight: 80 kg

DRUGS (2)
  1. ACLASTA [Suspect]
     Indication: OSTEOPOROSIS
     Dosage: 5 MG ANNUAL
     Route: 042
     Dates: start: 201403
  2. ACE INHIBITOR NOS [Concomitant]
     Indication: HYPERTENSION
     Dosage: 10 MG, QD
     Route: 048

REACTIONS (13)
  - Abdominal pain [Recovering/Resolving]
  - Pain [Recovering/Resolving]
  - Vomiting [Unknown]
  - Pyrexia [Unknown]
  - Lipase increased [Unknown]
  - Hypotension [Unknown]
  - Blood urea increased [Unknown]
  - Hyperphosphataemia [Unknown]
  - Blood creatinine increased [Unknown]
  - Hypocalcaemia [Unknown]
  - Vitamin D decreased [Unknown]
  - Gastritis [Unknown]
  - Malaise [Unknown]
